FAERS Safety Report 13618500 (Version 4)
Quarter: 2017Q4

REPORT INFORMATION
  Report Type: Spontaneous
  Country: GB (occurrence: GB)
  Receive Date: 20170606
  Receipt Date: 20171108
  Transmission Date: 20180320
  Serious: Yes (Hospitalization)
  Sender: FDA-Public Use
  Company Number: GB-TEVA-773604ACC

PATIENT
  Age: 71 Year
  Sex: Female
  Weight: 64.7 kg

DRUGS (27)
  1. FLUCONAZOLE. [Concomitant]
     Active Substance: FLUCONAZOLE
     Indication: DYSPHAGIA
     Dosage: 100 MILLIGRAM DAILY; 100 MG
     Route: 048
     Dates: start: 20160826, end: 20160901
  2. NYSTATIN. [Concomitant]
     Active Substance: NYSTATIN
     Indication: ORAL PAIN
     Dosage: 4 ML DAILY; 4 ML
     Route: 048
     Dates: start: 20160826, end: 20160901
  3. OXYLAN PROLONGED RELEASE [Concomitant]
     Indication: CHEST PAIN
  4. ZOMETA [Concomitant]
     Active Substance: ZOLEDRONIC ACID
     Indication: PROPHYLAXIS
     Route: 065
  5. ACICLOVIR [Concomitant]
     Active Substance: ACYCLOVIR
     Indication: INFECTION PROPHYLAXIS
     Dosage: 800 MILLIGRAM DAILY; 800 MG
     Route: 048
     Dates: start: 20160803
  6. RAMIPRIL. [Concomitant]
     Active Substance: RAMIPRIL
     Indication: HYPERTENSION
     Route: 065
  7. FLUCONAZOLE. [Concomitant]
     Active Substance: FLUCONAZOLE
     Indication: ORAL PAIN
     Dosage: 100 MILLIGRAM DAILY; 100 MG
     Route: 048
     Dates: start: 20161007, end: 20161014
  8. OXYNORM [Concomitant]
     Active Substance: OXYCODONE HYDROCHLORIDE
     Indication: ARTHRALGIA
  9. DEXAMETHASONE. [Suspect]
     Active Substance: DEXAMETHASONE
     Dosage: 5.7143 MILLIGRAM DAILY; 40 MILLIGRAM
     Route: 048
     Dates: start: 20160803, end: 20160813
  10. PARACETAMOL [Concomitant]
     Active Substance: ACETAMINOPHEN
     Indication: ARTHRALGIA
  11. TINZAPARIN [Concomitant]
     Active Substance: TINZAPARIN
     Indication: THROMBOSIS PROPHYLAXIS
     Route: 065
     Dates: start: 20160803
  12. OXYLAN PROLONGED RELEASE [Concomitant]
     Indication: ARTHRALGIA
     Dosage: 60 MILLIGRAM DAILY; 60 MILLIGRAM
     Route: 065
  13. PARACETAMOL [Concomitant]
     Active Substance: ACETAMINOPHEN
     Indication: NON-CARDIAC CHEST PAIN
     Dosage: 4000 MILLIGRAM DAILY; 4000 MG
     Route: 048
     Dates: start: 20160622
  14. REVLIMID [Suspect]
     Active Substance: LENALIDOMIDE
     Indication: PLASMA CELL MYELOMA
     Route: 048
     Dates: start: 20160803, end: 20160813
  15. FLUCONAZOLE. [Concomitant]
     Active Substance: FLUCONAZOLE
     Indication: ORAL CANDIDIASIS
     Dosage: 100 MILLIGRAM DAILY; 100 MG
     Route: 048
     Dates: start: 20160907
  16. METOCLOPRAMIDE. [Concomitant]
     Active Substance: METOCLOPRAMIDE
     Indication: GASTROOESOPHAGEAL REFLUX DISEASE
     Dosage: 40 MILLIGRAM DAILY; 40 MG
     Route: 048
     Dates: start: 20160803
  17. OMEPRAZOLE. [Concomitant]
     Active Substance: OMEPRAZOLE
     Indication: GASTRITIS PROPHYLAXIS
     Dosage: 20 MILLIGRAM DAILY; 20 MG
     Route: 048
     Dates: start: 20160803
  18. DEXAMETHASONE. [Suspect]
     Active Substance: DEXAMETHASONE
     Indication: PLASMA CELL MYELOMA
     Dosage: 40 MILLIGRAM
     Route: 048
  19. NYSTATIN. [Concomitant]
     Active Substance: NYSTATIN
     Indication: DYSPHAGIA
     Dosage: 4 ML DAILY; 4 ML
     Route: 048
     Dates: start: 20161118, end: 20161125
  20. NYSTATIN. [Concomitant]
     Active Substance: NYSTATIN
     Indication: ORAL CANDIDIASIS
     Dosage: 4 ML DAILY; 4 ML
     Route: 048
     Dates: start: 20160907
  21. OXYCODONE HYDROCHLORIDE. [Concomitant]
     Active Substance: OXYCODONE HYDROCHLORIDE
     Indication: NON-CARDIAC CHEST PAIN
  22. OXYNORM [Concomitant]
     Active Substance: OXYCODONE HYDROCHLORIDE
     Indication: CHEST PAIN
     Route: 065
  23. ZOLEDRONIC ACID [Concomitant]
     Active Substance: ZOLEDRONIC ACID
     Indication: PROPHYLAXIS
     Dosage: 3.5 MG
     Route: 041
     Dates: start: 20160706
  24. AMLODIPINE [Concomitant]
     Active Substance: AMLODIPINE BESYLATE
     Indication: HYPERTENSION
     Route: 065
  25. REVLIMID [Suspect]
     Active Substance: LENALIDOMIDE
     Dosage: 10 MILLIGRAM DAILY; 10 MILLIGRAM
     Route: 048
     Dates: start: 20160817
  26. ALLOPURINOL. [Concomitant]
     Active Substance: ALLOPURINOL
     Indication: PROPHYLAXIS
     Dosage: 300 MILLIGRAM DAILY;
     Route: 048
     Dates: start: 20160803
  27. OXYCODONE HYDROCHLORIDE. [Concomitant]
     Active Substance: OXYCODONE HYDROCHLORIDE
     Indication: ARTHRALGIA
     Dosage: 20 MILLIGRAM DAILY; 20 MG
     Route: 048
     Dates: start: 20160706

REACTIONS (13)
  - Blood creatinine increased [Recovered/Resolved]
  - Neuropathy peripheral [Not Recovered/Not Resolved]
  - Oral pain [Not Recovered/Not Resolved]
  - Dysphagia [Recovering/Resolving]
  - Dry mouth [Not Recovered/Not Resolved]
  - Constipation [Unknown]
  - Anaemia [Not Recovered/Not Resolved]
  - Urosepsis [Recovered/Resolved]
  - External ear cellulitis [Recovering/Resolving]
  - Decreased appetite [Unknown]
  - Oral candidiasis [Not Recovered/Not Resolved]
  - Atrial fibrillation [Recovered/Resolved]
  - Lethargy [Not Recovered/Not Resolved]

NARRATIVE: CASE EVENT DATE: 20160812
